FAERS Safety Report 9256893 (Version 2)
Quarter: 2013Q2

REPORT INFORMATION
  Report Type: Spontaneous
  Country: US (occurrence: None)
  Receive Date: 20130424
  Receipt Date: 20130501
  Transmission Date: 20140414
  Serious: Yes (Other)
  Sender: FDA-Public Use
  Company Number: 2012SA034053

PATIENT
  Age: 47 Year
  Sex: Female

DRUGS (1)
  1. MENTHOL [Suspect]
     Dates: start: 20120428, end: 20120428

REACTIONS (5)
  - Application site burn [None]
  - Application site scar [None]
  - Discomfort [None]
  - Burns first degree [None]
  - Insomnia [None]
